FAERS Safety Report 11005042 (Version 4)
Quarter: 2015Q4

REPORT INFORMATION
  Report Type: Report from Study
  Country: JP (occurrence: JP)
  Receive Date: 20150409
  Receipt Date: 20151228
  Transmission Date: 20160304
  Serious: Yes (Life-Threatening, Hospitalization)
  Sender: FDA-Public Use
  Company Number: JP-EISAI MEDICAL RESEARCH-EC-2015-005776

PATIENT
  Age: 76 Year
  Sex: Female
  Weight: 145 kg

DRUGS (13)
  1. ACTOS [Concomitant]
     Active Substance: PIOGLITAZONE HYDROCHLORIDE
  2. METHYCOBAL [Concomitant]
     Active Substance: METHYLCOBALAMIN
  3. RINDERON V [Concomitant]
     Active Substance: BETAMETHASONE VALERATE
  4. LIVALO [Concomitant]
     Active Substance: PITAVASTATIN CALCIUM
  5. MAGMITT [Concomitant]
     Active Substance: MAGNESIUM OXIDE
  6. MUCOSTA [Concomitant]
     Active Substance: REBAMIPIDE
  7. PRIMPERAN [Concomitant]
     Active Substance: METOCLOPRAMIDE HYDROCHLORIDE
  8. PURSENNID [Concomitant]
     Active Substance: SENNOSIDES A AND B
  9. HALAVEN [Suspect]
     Active Substance: ERIBULIN MESYLATE
     Indication: BREAST CANCER
     Route: 041
     Dates: start: 20141210, end: 20150129
  10. HALAVEN [Suspect]
     Active Substance: ERIBULIN MESYLATE
     Route: 041
     Dates: start: 20150212, end: 20150326
  11. PROTECADIN [Concomitant]
     Active Substance: LAFUTIDINE
  12. DECADRON [Concomitant]
     Active Substance: DEXAMETHASONE
  13. SEROTONE [Concomitant]
     Active Substance: AZASETRON HYDROCHLORIDE

REACTIONS (2)
  - Interstitial lung disease [Recovering/Resolving]
  - Pneumocystis jirovecii pneumonia [Recovering/Resolving]

NARRATIVE: CASE EVENT DATE: 20150326
